FAERS Safety Report 15479023 (Version 1)
Quarter: 2018Q4

REPORT INFORMATION
  Report Type: Report from Study
  Country: DE (occurrence: DE)
  Receive Date: 20181009
  Receipt Date: 20181009
  Transmission Date: 20190205
  Serious: Yes (Hospitalization)
  Sender: FDA-Public Use
  Company Number: DE-PFIZER INC-2018402552

PATIENT
  Age: 62 Year
  Sex: Female
  Weight: 54 kg

DRUGS (24)
  1. FLUOROURACIL. [Suspect]
     Active Substance: FLUOROURACIL
     Indication: COLORECTAL CANCER METASTATIC
     Dosage: 620 MG, UNK
     Route: 040
     Dates: start: 20180711
  2. FLUOROURACIL. [Suspect]
     Active Substance: FLUOROURACIL
     Dosage: 615 MG, UNK
     Route: 040
     Dates: start: 20180808
  3. FLUOROURACIL. [Suspect]
     Active Substance: FLUOROURACIL
     Dosage: 625 MG, UNK
     Route: 040
     Dates: start: 20180725
  4. TOREM [Concomitant]
     Active Substance: TORSEMIDE
     Indication: HYPOKINESIA
     Dosage: 2.5 MG, QD
     Route: 048
     Dates: start: 20180710
  5. LAXANS-RATIOPHARM PICO [Concomitant]
     Indication: CONSTIPATION
     Dosage: 7.5 MG, QD
     Route: 048
     Dates: start: 20180709
  6. MOVICOL [Concomitant]
     Active Substance: POLYETHYLENE GLYCOL 3350\POTASSIUM CHLORIDE\SODIUM BICARBONATE\SODIUM CHLORIDE
     Indication: CONSTIPATION
     Dosage: 13.1 G, QD
     Route: 048
     Dates: start: 201806
  7. CALCIUM FOLINATE [Suspect]
     Active Substance: LEUCOVORIN CALCIUM
     Dosage: 615 MG, UNK
     Dates: start: 20180808
  8. OXALIPLATIN. [Suspect]
     Active Substance: OXALIPLATIN
     Indication: COLORECTAL CANCER METASTATIC
     Dosage: 130 MG, UNK
     Dates: start: 20180711
  9. FLUOROURACIL. [Suspect]
     Active Substance: FLUOROURACIL
     Dosage: 3650 MG, UNK
     Route: 042
     Dates: start: 20180905
  10. CALCIUM FOLINATE [Suspect]
     Active Substance: LEUCOVORIN CALCIUM
     Dosage: 600 MG, UNK
     Dates: start: 20180905
  11. FLUOROURACIL. [Suspect]
     Active Substance: FLUOROURACIL
     Dosage: 3745 MG, UNK
     Route: 042
     Dates: start: 20180725
  12. PANITUMUMAB [Suspect]
     Active Substance: PANITUMUMAB
     Dosage: 325 MG, UNK
     Route: 042
     Dates: start: 20180822
  13. PANTOZOL [Concomitant]
     Active Substance: PANTOPRAZOLE SODIUM
     Indication: GASTRITIS
     Dosage: 40 MG, QD
     Route: 048
     Dates: start: 20180613
  14. CALCIUM FOLINATE [Suspect]
     Active Substance: LEUCOVORIN CALCIUM
     Indication: COLORECTAL CANCER METASTATIC
     Dosage: 620 MG, UNK
     Dates: start: 20180711
  15. CALCIUM FOLINATE [Suspect]
     Active Substance: LEUCOVORIN CALCIUM
     Dosage: 625 MG, UNK
     Dates: start: 20180725
  16. OXALIPLATIN. [Suspect]
     Active Substance: OXALIPLATIN
     Dosage: 300 MG, UNK
     Dates: start: 20180905
  17. FLUOROURACIL. [Suspect]
     Active Substance: FLUOROURACIL
     Dosage: 3695 MG, UNK
     Route: 042
     Dates: start: 20180808
  18. RAMIPRIL-RATIOPHARM [Concomitant]
     Indication: HYPOKINESIA
     Dosage: 2.5 MG, QD
     Route: 048
     Dates: start: 20180710
  19. ACIC [Concomitant]
     Active Substance: ACYCLOVIR
     Indication: HERPES ZOSTER
     Dosage: 400 MG, QD
     Route: 048
     Dates: start: 20180709
  20. FLUOROURACIL. [Suspect]
     Active Substance: FLUOROURACIL
     Dosage: 3740 MG, UNK
     Route: 042
     Dates: start: 20180711
  21. PANITUMUMAB [Suspect]
     Active Substance: PANITUMUMAB
     Dosage: 315 MG, UNK
     Route: 042
     Dates: start: 20180808
  22. FLUOROURACIL. [Suspect]
     Active Substance: FLUOROURACIL
     Dosage: 600 MG, UNK
     Route: 040
     Dates: start: 20180905
  23. PANITUMUMAB [Suspect]
     Active Substance: PANITUMUMAB
     Indication: COLORECTAL CANCER METASTATIC
     Dosage: 325 MG, UNK
     Route: 042
     Dates: start: 20180711
  24. PANITUMUMAB [Suspect]
     Active Substance: PANITUMUMAB
     Dosage: 300 MG, UNK
     Route: 042
     Dates: start: 20180905

REACTIONS (1)
  - Abdominal pain [Recovered/Resolved]

NARRATIVE: CASE EVENT DATE: 20180822
